FAERS Safety Report 8959070 (Version 3)
Quarter: 2013Q2

REPORT INFORMATION
  Report Type: Spontaneous
  Country: US (occurrence: US)
  Receive Date: 20121212
  Receipt Date: 20130403
  Transmission Date: 20140414
  Serious: Yes (Hospitalization)
  Sender: FDA-Public Use
  Company Number: US-BAYER-2012-128456

PATIENT
  Age: 28 Year
  Sex: Female
  Weight: 113.38 kg

DRUGS (15)
  1. YAZ [Suspect]
     Indication: CONTRACEPTION
     Dosage: UNK
     Dates: start: 200801, end: 200810
  2. YAZ [Suspect]
     Indication: PREMENSTRUAL DYSPHORIC DISORDER
  3. YASMIN [Suspect]
     Indication: CONTRACEPTION
     Dosage: UNK
     Dates: start: 200810, end: 201208
  4. YASMIN [Suspect]
     Indication: PREMENSTRUAL DYSPHORIC DISORDER
  5. OCELLA [Suspect]
     Indication: CONTRACEPTION
     Dosage: UNK
     Dates: start: 200810, end: 201208
  6. OCELLA [Suspect]
     Indication: PREMENSTRUAL DYSPHORIC DISORDER
  7. AZELAST NASA [Concomitant]
     Dosage: 137 MCG
  8. ASTELIN [AZELASTINE HYDROCHLORIDE] [Concomitant]
     Dosage: 1 SPRAY 2 TIMES PER DAY
     Route: 045
  9. LEXAPRO [Concomitant]
     Dosage: 10 MG, DAILY AT BEDTIME
     Route: 048
  10. SINGULAIR [Concomitant]
     Indication: ASTHMA
     Dosage: 10 MG, DAILY AT BEDTIME
     Route: 048
     Dates: start: 200101
  11. PROVENTIL HFA [Concomitant]
  12. PROVENTIL [Concomitant]
     Indication: ASTHMA
     Dosage: UNK
     Dates: start: 200101
  13. ASTELIN [Concomitant]
     Indication: ASTHMA
     Dosage: UNK
     Dates: start: 200101
  14. ZYRTEC [Concomitant]
     Indication: MULTIPLE ALLERGIES
     Dosage: 10 MG, UNK
  15. GLUCOSAMINE [Concomitant]
     Indication: ARTHRALGIA
     Dosage: 1 TAB, QD

REACTIONS (8)
  - Pulmonary embolism [None]
  - Deep vein thrombosis [None]
  - Injury [None]
  - Pain [None]
  - General physical health deterioration [None]
  - Emotional distress [None]
  - Pain [None]
  - Anxiety [None]
